FAERS Safety Report 21838853 (Version 2)
Quarter: 2023Q1

REPORT INFORMATION
  Report Type: Report from Study
  Country: ES (occurrence: ES)
  Receive Date: 20230109
  Receipt Date: 20230118
  Transmission Date: 20230417
  Serious: Yes (Other)
  Sender: FDA-Public Use
  Company Number: ES-ELI_LILLY_AND_COMPANY-ES202211002965

PATIENT
  Age: 42 Year
  Sex: Female

DRUGS (7)
  1. DUPHALAC [Suspect]
     Active Substance: LACTULOSE
     Indication: Constipation
     Dosage: UNK UNK, TID
     Route: 065
  2. FENTANYL [Suspect]
     Active Substance: FENTANYL
     Indication: Axillary pain
     Dosage: UNK UNK, UNKNOWN
     Route: 065
     Dates: start: 202210
  3. DISODIUM HYDROGEN CITRATE\SODIUM LAURYL SULFATE [Suspect]
     Active Substance: DISODIUM HYDROGEN CITRATE\SODIUM LAURYL SULFATE
     Indication: Constipation
     Dosage: UNK UNK, UNKNOWN
     Route: 065
     Dates: start: 20221029
  4. ABEMACICLIB [Suspect]
     Active Substance: ABEMACICLIB
     Indication: Breast cancer metastatic
     Dosage: 300 MILLIGRAM, QD, 150 MG, BID
     Route: 048
     Dates: start: 20221020
  5. LETROZOLE [Concomitant]
     Active Substance: LETROZOLE
     Indication: Breast cancer metastatic
     Dosage: UNK
     Route: 065
     Dates: start: 20221020
  6. ENEMA (SODIUM PHOSPHATE, DIBASIC\SODIUM PHOSPHATE, MONOBASIC) [Concomitant]
     Active Substance: SODIUM PHOSPHATE, DIBASIC\SODIUM PHOSPHATE, MONOBASIC
     Indication: Product used for unknown indication
     Dosage: UNK
     Route: 065
  7. VENLAFAXINE [Concomitant]
     Active Substance: VENLAFAXINE HYDROCHLORIDE
     Indication: Antidepressant therapy
     Dosage: UNK
     Route: 065

REACTIONS (14)
  - Malignant neoplasm progression [Not Recovered/Not Resolved]
  - Anorectal discomfort [Unknown]
  - Memory impairment [Recovering/Resolving]
  - Infection [Not Recovered/Not Resolved]
  - Decreased appetite [Not Recovered/Not Resolved]
  - Asthenia [Unknown]
  - Fatigue [Not Recovered/Not Resolved]
  - Nervousness [Not Recovered/Not Resolved]
  - Heart rate increased [Not Recovered/Not Resolved]
  - Dry mouth [Not Recovered/Not Resolved]
  - Diarrhoea [Unknown]
  - Axillary pain [Unknown]
  - Constipation [Not Recovered/Not Resolved]
  - Drug ineffective [Unknown]

NARRATIVE: CASE EVENT DATE: 20221030
